FAERS Safety Report 8049954 (Version 13)
Quarter: 2013Q1

REPORT INFORMATION
  Report Type: Report from Study
  Country: DE (occurrence: DE)
  Receive Date: 20110722
  Receipt Date: 20130321
  Transmission Date: 20140127
  Serious: Yes (Hospitalization)
  Sender: FDA-Public Use
  Company Number: DE-UCBSA-036846

PATIENT
  Sex: Female
  Weight: 67 kg

DRUGS (12)
  1. CERTOLIZUMAB PEGOL [Suspect]
     Indication: RHEUMATOID ARTHRITIS
     Dosage: NUMBER OF DOSES RECEIVED: 22
     Route: 058
     Dates: start: 20100430, end: 20110201
  2. METEX [Suspect]
     Indication: RHEUMATOID ARTHRITIS
     Dosage: QS
     Route: 051
     Dates: start: 200504, end: 201202
  3. METEX [Suspect]
     Indication: RHEUMATOID ARTHRITIS
     Dosage: 20 MG/W
     Dates: start: 201102
  4. PREDNISOLONE [Concomitant]
     Indication: RHEUMATOID ARTHRITIS
     Dates: start: 200007
  5. ARCOXIA [Concomitant]
     Indication: RHEUMATOID ARTHRITIS
     Dates: start: 200703
  6. TEBESIUM [Concomitant]
     Indication: ANTIBIOTIC PROPHYLAXIS
     Dates: start: 20100506, end: 201102
  7. CLEXANE [Concomitant]
     Indication: THROMBOSIS PROPHYLAXIS
     Dates: start: 201102, end: 201108
  8. DEKRISTOL [Concomitant]
     Indication: OSTEOPOROSIS
     Dosage: QS
     Dates: start: 20101215
  9. DEKRISTOL [Concomitant]
     Indication: OSTEOPOROSIS
  10. PALLADONE [Concomitant]
     Dosage: 1.3 MG TABLET UPTO 4X1 MAX EVERY 6 HRS
  11. FOLSAURE [Concomitant]
     Indication: DRUG TOXICITY PROPHYLAXIS
     Dosage: SUFFICIENT QUANTITY
     Dates: start: 20050414
  12. TRAMADOLOR [Concomitant]
     Indication: RHEUMATOID ARTHRITIS
     Dosage: 50 -100 MG
     Dates: start: 20100701, end: 201112

REACTIONS (3)
  - Pelvic fracture [Recovering/Resolving]
  - Joint arthroplasty [Not Recovered/Not Resolved]
  - Postoperative wound infection [Not Recovered/Not Resolved]
